FAERS Safety Report 21602743 (Version 1)
Quarter: 2022Q4

REPORT INFORMATION
  Report Type: Spontaneous
  Country: CA (occurrence: CA)
  Receive Date: 20221116
  Receipt Date: 20221116
  Transmission Date: 20230113
  Serious: Yes (Other)
  Sender: FDA-Public Use
  Company Number: CA-PFIZER INC-202201295701

PATIENT
  Age: 64 Year
  Sex: Male
  Weight: 93 kg

DRUGS (3)
  1. ABRILADA [Suspect]
     Active Substance: ADALIMUMAB-AFZB
     Indication: Colitis ulcerative
     Dosage: 40 MG, 160MG WEEK 0, 80MG WEEK 2, THEN 40MG EVERY 2 WEEKS
     Route: 058
     Dates: start: 20220509
  2. ABRILADA [Suspect]
     Active Substance: ADALIMUMAB-AFZB
     Dosage: 40 MG, 160MG WEEK 0, 80MG WEEK 2, THEN 40MG EVERY 2 WEEKS
     Route: 058
  3. MESALAMINE [Concomitant]
     Active Substance: MESALAMINE
     Dosage: UNK

REACTIONS (1)
  - Prostatic disorder [Not Recovered/Not Resolved]

NARRATIVE: CASE EVENT DATE: 20220101
